FAERS Safety Report 22140720 (Version 5)
Quarter: 2024Q1

REPORT INFORMATION
  Report Type: Report from Study
  Country: CA (occurrence: None)
  Receive Date: 20230327
  Receipt Date: 20240129
  Transmission Date: 20240409
  Serious: Yes (Other)
  Sender: FDA-Public Use
  Company Number: CA-PFIZER INC-202300124817

PATIENT
  Age: 56 Year
  Sex: Female

DRUGS (22)
  1. METHOTREXATE [Suspect]
     Active Substance: METHOTREXATE
     Indication: Product used for unknown indication
  2. ENTYVIO [Suspect]
     Active Substance: VEDOLIZUMAB
     Indication: Crohn^s disease
  3. ENTYVIO [Suspect]
     Active Substance: VEDOLIZUMAB
  4. ENTYVIO [Suspect]
     Active Substance: VEDOLIZUMAB
  5. ENTYVIO [Suspect]
     Active Substance: VEDOLIZUMAB
  6. ENTYVIO [Suspect]
     Active Substance: VEDOLIZUMAB
  7. ENTYVIO [Suspect]
     Active Substance: VEDOLIZUMAB
  8. ENTYVIO [Suspect]
     Active Substance: VEDOLIZUMAB
  9. ENTYVIO [Suspect]
     Active Substance: VEDOLIZUMAB
     Dosage: CYCLICAL
  10. ENTYVIO [Suspect]
     Active Substance: VEDOLIZUMAB
  11. ENTYVIO [Suspect]
     Active Substance: VEDOLIZUMAB
  12. BENADRYL [Concomitant]
     Active Substance: DIPHENHYDRAMINE HYDROCHLORIDE
     Indication: Premedication
  13. CANDESARTAN [Concomitant]
     Active Substance: CANDESARTAN
  14. CHOLESTYRAMINE [Concomitant]
     Active Substance: CHOLESTYRAMINE
  15. DIMETHYL SULFOXIDE [Concomitant]
     Active Substance: DIMETHYL SULFOXIDE
  16. HYDROCHLOROTHIAZIDE [Concomitant]
     Active Substance: HYDROCHLOROTHIAZIDE
  17. HYDROCORTISONE [Concomitant]
     Active Substance: HYDROCORTISONE
     Indication: Premedication
  18. MESALAMINE [Concomitant]
     Active Substance: MESALAMINE
  19. METHIMAZOLE [Concomitant]
     Active Substance: METHIMAZOLE
  20. OMEPRAZOLE [Concomitant]
     Active Substance: OMEPRAZOLE
  21. MESALAMINE [Concomitant]
     Active Substance: MESALAMINE
  22. PREDNISONE [Concomitant]
     Active Substance: PREDNISONE

REACTIONS (48)
  - Drug ineffective [Recovered/Resolved]
  - Incorrect dose administered [Recovered/Resolved]
  - Off label use [Recovered/Resolved]
  - Abdominal distension [Recovered/Resolved]
  - Abdominal pain [Recovered/Resolved]
  - Arthralgia [Recovered/Resolved]
  - Blood pressure increased [Recovered/Resolved]
  - Cough [Recovered/Resolved]
  - Dehydration [Recovered/Resolved]
  - Diabetes mellitus [Recovered/Resolved]
  - Diarrhoea [Recovered/Resolved]
  - Dyspnoea [Recovered/Resolved]
  - Ear congestion [Recovered/Resolved]
  - Fatigue [Recovered/Resolved]
  - Fluid retention [Recovered/Resolved]
  - Gastrointestinal inflammation [Recovered/Resolved]
  - Gastrooesophageal reflux disease [Recovered/Resolved]
  - Headache [Recovered/Resolved]
  - Hepatic enzyme increased [Recovered/Resolved]
  - Hepatic steatosis [Recovered/Resolved]
  - Hot flush [Recovered/Resolved]
  - Hyperhidrosis [Recovered/Resolved]
  - Hyperlipidaemia [Recovered/Resolved]
  - Influenza [Recovered/Resolved]
  - Limb discomfort [Recovered/Resolved]
  - Liver function test increased [Recovered/Resolved]
  - Nasal congestion [Recovered/Resolved]
  - Nausea [Recovered/Resolved]
  - Oedema peripheral [Recovered/Resolved]
  - Osteopenia [Recovered/Resolved]
  - Pain [Recovered/Resolved]
  - Palpitations [Recovered/Resolved]
  - Peripheral swelling [Recovered/Resolved]
  - Pyrexia [Recovered/Resolved]
  - Renal impairment [Recovered/Resolved]
  - Swelling face [Recovered/Resolved]
  - White blood cell count increased [Recovered/Resolved]
  - Tinnitus [Recovered/Resolved]
  - Anxiety [Recovered/Resolved]
  - Blood pressure decreased [Recovered/Resolved]
  - Influenza like illness [Recovered/Resolved]
  - Neutrophil count increased [Recovered/Resolved]
  - Proctalgia [Recovered/Resolved]
  - Abdominal discomfort [Recovered/Resolved]
  - Crohn^s disease [Recovered/Resolved]
  - Flatulence [Recovered/Resolved]
  - Hypertension [Recovered/Resolved]
  - Tracheal compression [Recovered/Resolved]
